FAERS Safety Report 13689989 (Version 5)
Quarter: 2018Q2

REPORT INFORMATION
  Report Type: Spontaneous
  Country: FR (occurrence: FR)
  Receive Date: 20170626
  Receipt Date: 20180420
  Transmission Date: 20180711
  Serious: Yes (Death, Hospitalization)
  Sender: FDA-Public Use
  Company Number: FR-PFIZER INC-2017268016

PATIENT
  Age: 75 Year
  Sex: Male

DRUGS (16)
  1. LYRICA [Suspect]
     Active Substance: PREGABALIN
     Dosage: 25 MG, 2X/DAY
     Dates: start: 2014, end: 201410
  2. CORTANCYL [Concomitant]
     Active Substance: PREDNISONE
     Dosage: 7.5 MG, DAILY
  3. LYRICA [Suspect]
     Active Substance: PREGABALIN
     Dosage: 75 MG, 2X/DAY
     Dates: start: 2013, end: 2014
  4. DOLIPRANE [Concomitant]
     Active Substance: ACETAMINOPHEN
     Dosage: 1 G, 2X/DAY (IN THE MORNING AND IN THE EVENING)
     Dates: start: 20150101
  5. UVEDOSE [Concomitant]
     Active Substance: CHOLECALCIFEROL
     Dosage: ONE AMPOULE PER MONTH
     Dates: end: 201408
  6. ARAVA [Concomitant]
     Active Substance: LEFLUNOMIDE
     Dosage: 20 MG, 1X/DAY IN THE MORNING
  7. LYRICA [Suspect]
     Active Substance: PREGABALIN
     Dosage: 25 MG, 2X/DAY
     Dates: start: 2014
  8. NEURONTIN [Suspect]
     Active Substance: GABAPENTIN
     Dosage: 600 MG, UNK
     Dates: start: 2014
  9. ARAVA [Concomitant]
     Active Substance: LEFLUNOMIDE
     Dosage: UNK
     Dates: end: 201411
  10. DOLIPRANE [Concomitant]
     Active Substance: ACETAMINOPHEN
     Dosage: 3 DF, DAILY
  11. CACIT D3 [Concomitant]
     Active Substance: CALCIUM\CHOLECALCIFEROL
     Dosage: (1000)1 DF, DAILY
  12. COVERSYL [Concomitant]
     Active Substance: PERINDOPRIL
     Dosage: 5 MG, 1X/DAY IN THE MORNING
  13. CONTRAMAL LP [Concomitant]
     Active Substance: TRAMADOL HYDROCHLORIDE
     Indication: PAIN
     Dosage: 200 MG (100 MG X 2), 1X/DAY
  14. NEURONTIN [Suspect]
     Active Substance: GABAPENTIN
     Dosage: 300 MG, UNK
     Dates: start: 201410, end: 2014
  15. CORTANCYL [Concomitant]
     Active Substance: PREDNISONE
     Dosage: 10 MG, DAILY
     Dates: start: 201303
  16. KETUM [Concomitant]
     Active Substance: KETOPROFEN

REACTIONS (25)
  - Personality disorder [Fatal]
  - Diarrhoea [Fatal]
  - Somnolence [Fatal]
  - Condition aggravated [Unknown]
  - Anxiety [Fatal]
  - Pulmonary oedema [Fatal]
  - Weight decreased [Fatal]
  - Memory impairment [Fatal]
  - Respiratory failure [Fatal]
  - Dehydration [Unknown]
  - Pneumonia [Fatal]
  - Rhabdomyolysis [Fatal]
  - Respiratory tract congestion [Fatal]
  - Rheumatoid arthritis [Unknown]
  - Iron deficiency anaemia [Unknown]
  - Decreased appetite [Fatal]
  - Pneumonia aspiration [Fatal]
  - Sepsis [Fatal]
  - Depression [Fatal]
  - Abdominal pain upper [Fatal]
  - Malaise [Unknown]
  - Fall [Fatal]
  - Wheezing [Fatal]
  - Productive cough [Fatal]
  - Asthenia [Unknown]

NARRATIVE: CASE EVENT DATE: 2014
